FAERS Safety Report 21329355 (Version 2)
Quarter: 2022Q3

REPORT INFORMATION
  Report Type: Report from Study
  Country: BE (occurrence: BE)
  Receive Date: 20220913
  Receipt Date: 20220922
  Transmission Date: 20221026
  Serious: Yes (Hospitalization)
  Sender: FDA-Public Use
  Company Number: BE-BoehringerIngelheim-2022-BI-190086

PATIENT
  Age: 85 Year
  Sex: Female
  Weight: 73 kg

DRUGS (5)
  1. ALDACTONE [Suspect]
     Active Substance: SPIRONOLACTONE
     Indication: Diuretic therapy
     Dosage: 12.5 MG, 2X/WEEK
     Route: 048
     Dates: start: 20220617
  2. JARDIANCE [Suspect]
     Active Substance: EMPAGLIFLOZIN
     Indication: Cardiac failure
     Dosage: 10 MG, 1X/DAY
     Route: 048
     Dates: start: 20220617, end: 20220710
  3. LANOXIN [Suspect]
     Active Substance: DIGOXIN
     Indication: Drug therapy
     Dosage: 0.13 MG, 1X/DAY
     Route: 048
  4. FUROSEMIDE [Suspect]
     Active Substance: FUROSEMIDE
     Indication: Diuretic therapy
     Dosage: 20 MG, 1X/DAY
     Route: 048
  5. RAMIPRIL [Concomitant]
     Active Substance: RAMIPRIL
     Indication: Angiotensin converting enzyme
     Dosage: 1.25 MG, 1X/DAY

REACTIONS (2)
  - Hypovolaemia [Recovered/Resolved]
  - Cystitis [Recovered/Resolved]

NARRATIVE: CASE EVENT DATE: 20220703
